FAERS Safety Report 24020853 (Version 1)
Quarter: 2024Q2

REPORT INFORMATION
  Report Type: Spontaneous
  Country: CN (occurrence: CN)
  Receive Date: 20240627
  Receipt Date: 20240627
  Transmission Date: 20240715
  Serious: Yes (Other)
  Sender: FDA-Public Use
  Company Number: CN-009507513-2406CHN007121

PATIENT
  Age: 72 Year
  Sex: Female
  Weight: 52 kg

DRUGS (3)
  1. CILASTATIN SODIUM\IMIPENEM [Suspect]
     Active Substance: CILASTATIN SODIUM\IMIPENEM
     Indication: Anti-infective therapy
     Dosage: 1 G, Q6H
     Route: 041
     Dates: start: 20240527, end: 20240527
  2. CILASTATIN SODIUM\IMIPENEM [Suspect]
     Active Substance: CILASTATIN SODIUM\IMIPENEM
     Dosage: 1 G, Q8H
     Dates: start: 20240528
  3. SODIUM CHLORIDE [Concomitant]
     Active Substance: SODIUM CHLORIDE
     Dosage: 100 MILLILITER, Q6H
     Route: 041
     Dates: start: 20240527

REACTIONS (2)
  - Delirium [Recovering/Resolving]
  - Dysphoria [Recovering/Resolving]

NARRATIVE: CASE EVENT DATE: 20240528
